FAERS Safety Report 24765942 (Version 1)
Quarter: 2024Q4

REPORT INFORMATION
  Report Type: Spontaneous
  Country: CN (occurrence: CN)
  Receive Date: 20241223
  Receipt Date: 20241223
  Transmission Date: 20250114
  Serious: Yes (Other)
  Sender: BAYER HEALTHCARE PHARMACEUTICALS INC.
  Company Number: CN-BAYER-2024A180252

PATIENT
  Age: 71 Year
  Sex: Female
  Weight: 60 kg

DRUGS (4)
  1. GLUCOBAY [Suspect]
     Active Substance: ACARBOSE
     Indication: Type 2 diabetes mellitus
     Dosage: 50 MG, TID, CHEWING
     Route: 048
     Dates: start: 2022, end: 20240527
  2. GLUCOBAY [Suspect]
     Active Substance: ACARBOSE
     Indication: Type 2 diabetes mellitus
     Dosage: 100 MG, TID, CHEWING
     Route: 048
     Dates: start: 20240528, end: 20240702
  3. METFORMIN HYDROCHLORIDE [Suspect]
     Active Substance: METFORMIN HYDROCHLORIDE
     Indication: Type 2 diabetes mellitus
     Dosage: 0.5 G, BID
     Route: 048
     Dates: start: 2022, end: 20240527
  4. METFORMIN HYDROCHLORIDE [Suspect]
     Active Substance: METFORMIN HYDROCHLORIDE
     Indication: Type 2 diabetes mellitus
     Dosage: 0.5 G, TID
     Route: 048
     Dates: start: 20240528, end: 20240702

REACTIONS (8)
  - Postmenopausal haemorrhage [None]
  - Pelvic inflammatory disease [None]
  - Hypertension [None]
  - Blood glucose abnormal [None]
  - Nausea [Recovered/Resolved]
  - Vomiting [None]
  - Respiratory rate increased [None]
  - Abdominal discomfort [None]

NARRATIVE: CASE EVENT DATE: 20240528
